FAERS Safety Report 9905188 (Version 1)
Quarter: 2013Q2

REPORT INFORMATION
  Report Type: Spontaneous
  Country: US (occurrence: None)
  Receive Date: 20130305
  Receipt Date: 20130305
  Transmission Date: 20140414
  Serious: Yes (Other)
  Sender: FDA-Public Use
  Company Number: 163-21880-12030699

PATIENT
  Age: 81 Year
  Sex: Female
  Weight: 72.58 kg

DRUGS (7)
  1. REVLIMID [Suspect]
     Indication: PLASMA CELL MYELOMA
     Route: 048
     Dates: start: 20120120
  2. VELCADE (BORTEZOMIB) (UNKNOWN) [Concomitant]
  3. DECADRON (DEXAMETHASONE) (UNKNOWN) [Concomitant]
  4. COUMADIN (WARFARIN SODIUM) (UNKNOWN) [Concomitant]
  5. ZOMETA (ZOLEDRONIC ACID) (UNKNOWN) [Concomitant]
  6. FISH OIL (FISH OIL) (UNKNOWN) [Concomitant]
  7. MULTIVITAMINS (MULTIVITAMINS) (UNKNOWN) [Concomitant]

REACTIONS (1)
  - Deep vein thrombosis [None]
